FAERS Safety Report 5187561-2 (Version None)
Quarter: 2006Q4

REPORT INFORMATION
  Report Type: 
  Country: None (occurrence: None)
  Receive Date: 20061213
  Receipt Date: 20061208
  Transmission Date: 20070319
  Serious: Yes (Death, Hospitalization, Other)
  Sender: FDA-Public Use
  Company Number: 2006US002620

PATIENT
  Age: 58 Year
  Sex: Male

DRUGS (12)
  1. PROGRAF [Suspect]
     Indication: LIVER TRANSPLANT REJECTION
     Dosage: SEE IMAGE
     Route: 048
     Dates: start: 20060607
  2. PROGRAF [Suspect]
     Indication: LIVER TRANSPLANT REJECTION
     Dosage: SEE IMAGE
     Route: 048
     Dates: start: 20061115
  3. MYCOPHENOLATE MOFETIL [Suspect]
     Indication: LIVER TRANSPLANT REJECTION
     Dosage: SEE IMAGE
     Route: 048
     Dates: start: 20061027, end: 20061028
  4. MYCOPHENOLATE MOFETIL [Suspect]
     Indication: LIVER TRANSPLANT REJECTION
     Dosage: SEE IMAGE
     Route: 048
     Dates: start: 20060605
  5. BACTRIM [Concomitant]
  6. PROTONIX [Concomitant]
  7. FLOMAX [Concomitant]
  8. LANTUS [Concomitant]
  9. METAMUCIL-2 [Concomitant]
  10. LISINOPRIL (LISINOPRIL DIHYDRATE) [Concomitant]
  11. ACYCLOVIR [Concomitant]
  12. CARAFATE [Concomitant]

REACTIONS (6)
  - CARDIAC ARREST [None]
  - HAEMODIALYSIS [None]
  - HEPATIC NEOPLASM MALIGNANT RECURRENT [None]
  - LUNG NEOPLASM [None]
  - METASTASES TO CENTRAL NERVOUS SYSTEM [None]
  - RENAL FAILURE ACUTE [None]
